FAERS Safety Report 9790871 (Version 2)
Quarter: 2014Q1

REPORT INFORMATION
  Report Type: Spontaneous
  Country: JP (occurrence: JP)
  Receive Date: 20131231
  Receipt Date: 20140131
  Transmission Date: 20141002
  Serious: Yes (Other)
  Sender: FDA-Public Use
  Company Number: JP-PFIZER INC-2013369604

PATIENT
  Sex: 0

DRUGS (1)
  1. CARDENALIN [Suspect]
     Dosage: UNK
     Route: 048

REACTIONS (2)
  - Haemorrhage subcutaneous [Unknown]
  - Chillblains [Unknown]
